FAERS Safety Report 21759422 (Version 4)
Quarter: 2023Q1

REPORT INFORMATION
  Report Type: Other
  Country: CA (occurrence: None)
  Receive Date: 20221221
  Receipt Date: 20230223
  Transmission Date: 20230418
  Serious: Yes (Other)
  Sender: FDA-Public Use
  Company Number: CA-ROCHE-3246270

PATIENT
  Age: 43 Year
  Sex: Female

DRUGS (2)
  1. OCREVUS [Suspect]
     Active Substance: OCRELIZUMAB
     Indication: Relapsing-remitting multiple sclerosis
     Dosage: MORE DOSAGE INFORMATION IS 300 MG AT DAY 0 AND 14, THEN 600 MG EVERY 6 MONTH
     Route: 042
     Dates: start: 20220801
  2. NYSTATIN [Suspect]
     Active Substance: NYSTATIN
     Indication: Infection
     Route: 065

REACTIONS (8)
  - Vaginal abscess [Recovered/Resolved]
  - Fungal pharyngitis [Recovering/Resolving]
  - Oral candidiasis [Unknown]
  - Lymphocyte count decreased [Unknown]
  - Blood immunoglobulin G decreased [Unknown]
  - Trichoglossia [Unknown]
  - Paraesthesia [Unknown]
  - Drug ineffective [Unknown]

NARRATIVE: CASE EVENT DATE: 20220831
